FAERS Safety Report 18596187 (Version 1)
Quarter: 2020Q4

REPORT INFORMATION
  Report Type: Spontaneous
  Country: CA (occurrence: CA)
  Receive Date: 20201209
  Receipt Date: 20201209
  Transmission Date: 20210114
  Serious: Yes (Hospitalization, Other)
  Sender: FDA-Public Use
  Company Number: CA-SA-2020SA346039

PATIENT

DRUGS (15)
  1. BISOPROLOL [Concomitant]
     Active Substance: BISOPROLOL
  2. HYDROCHLOROTHIAZIDE;QUINAPRIL [Concomitant]
  3. DEXAMETHASONE. [Suspect]
     Active Substance: DEXAMETHASONE
     Indication: HYPERSENSITIVITY
  4. DEXAMETHASONE. [Suspect]
     Active Substance: DEXAMETHASONE
     Indication: INFUSION RELATED REACTION
  5. JANUVIA [Concomitant]
     Active Substance: SITAGLIPTIN PHOSPHATE
  6. WARFARIN [Concomitant]
     Active Substance: WARFARIN
  7. DOCETAXEL. [Suspect]
     Active Substance: DOCETAXEL
     Indication: BREAST CANCER
     Dosage: 190 MG, Q3W (1 EVERY 21 DAYS)
     Route: 042
  8. ACETAMINOPHEN. [Concomitant]
     Active Substance: ACETAMINOPHEN
  9. FILGRASTIM [Concomitant]
     Active Substance: FILGRASTIM
  10. AMIODARONE [Concomitant]
     Active Substance: AMIODARONE
  11. GLICLAZIDE [Concomitant]
     Active Substance: GLICLAZIDE
  12. HYDROMORPHONE [Concomitant]
     Active Substance: HYDROMORPHONE
  13. DEXAMETHASONE. [Suspect]
     Active Substance: DEXAMETHASONE
     Indication: PROPHYLAXIS
     Dosage: 8 MG, BID (2 EVERY 1 DAYS)
     Route: 048
  14. METFORMIN [Concomitant]
     Active Substance: METFORMIN HYDROCHLORIDE
  15. ROSUVASTATIN. [Concomitant]
     Active Substance: ROSUVASTATIN

REACTIONS (9)
  - Fall [Unknown]
  - Haemoglobin abnormal [Unknown]
  - Immunodeficiency [Unknown]
  - Blood glucose increased [Unknown]
  - Candida infection [Unknown]
  - Hyperglycaemia [Unknown]
  - Fungal infection [Unknown]
  - White blood cell count increased [Unknown]
  - Asthenia [Unknown]
